FAERS Safety Report 16108598 (Version 1)
Quarter: 2019Q1

REPORT INFORMATION
  Report Type: Report from Study
  Country: FR (occurrence: FR)
  Receive Date: 20190323
  Receipt Date: 20190323
  Transmission Date: 20190418
  Serious: Yes (Other)
  Sender: FDA-Public Use
  Company Number: FR-ACCORD-114203

PATIENT
  Age: 21 Year
  Sex: Female

DRUGS (2)
  1. METHOTREXATE. [Suspect]
     Active Substance: METHOTREXATE
     Indication: PSORIASIS
     Dosage: TEST DOSE
  2. FOLATE SODIUM/FOLIC ACID [Concomitant]
     Indication: PSORIASIS
     Dosage: 5 OR 10 MG

REACTIONS (2)
  - Lung disorder [Unknown]
  - Hypersensitivity [Unknown]
